FAERS Safety Report 9005962 (Version 1)
Quarter: 2013Q1

REPORT INFORMATION
  Report Type: Spontaneous
  Country: US (occurrence: US)
  Receive Date: 20130110
  Receipt Date: 20130110
  Transmission Date: 20140127
  Serious: Yes (Hospitalization)
  Sender: FDA-Public Use
  Company Number: US-009507513-1301USA003091

PATIENT
  Age: 57 Year
  Sex: Male

DRUGS (1)
  1. SINGULAIR [Suspect]
     Dosage: 5/20 MG
     Route: 048

REACTIONS (2)
  - Warm type haemolytic anaemia [Unknown]
  - Overdose [Unknown]
